FAERS Safety Report 6371287-3 (Version None)
Quarter: 2009Q3

REPORT INFORMATION
  Report Type: 
  Country: None (occurrence: None)
  Receive Date: 20090923
  Receipt Date: 20090921
  Transmission Date: 20100115
  Serious: Yes (Hospitalization)
  Sender: FDA-Public Use
  Company Number: BE-BRISTOL-MYERS SQUIBB COMPANY-14787089

PATIENT
  Age: 69 Year
  Sex: Male
  Weight: 75 kg

DRUGS (11)
  1. TAXOL [Suspect]
     Indication: NON-SMALL CELL LUNG CANCER
     Route: 042
     Dates: start: 20090902, end: 20090902
  2. CARBOPLATIN [Suspect]
     Indication: NON-SMALL CELL LUNG CANCER
     Route: 042
     Dates: start: 20090902, end: 20090902
  3. BLINDED: PLACEBO [Suspect]
     Indication: NON-SMALL CELL LUNG CANCER
     Dates: start: 20090902, end: 20090902
  4. TRANSTEC [Concomitant]
  5. OMEPRAZOLE [Concomitant]
  6. DICLOFENAC [Concomitant]
  7. ACETAMINOPHEN [Concomitant]
  8. NOVABAN [Concomitant]
  9. ZOMETA [Concomitant]
  10. LITICAN [Concomitant]
  11. MORPHINE SULFATE INJ [Concomitant]

REACTIONS (4)
  - BLOOD ALKALINE PHOSPHATASE INCREASED [None]
  - C-REACTIVE PROTEIN INCREASED [None]
  - FEBRILE NEUTROPENIA [None]
  - RETICULOCYTE COUNT INCREASED [None]
